FAERS Safety Report 18146061 (Version 1)
Quarter: 2020Q3

REPORT INFORMATION
  Report Type: Spontaneous
  Country: US (occurrence: US)
  Receive Date: 20200813
  Receipt Date: 20200813
  Transmission Date: 20201103
  Serious: Yes (Other)
  Sender: FDA-Public Use
  Company Number: US-MACLEODS PHARMACEUTICALS US LTD-MAC2020027620

PATIENT

DRUGS (2)
  1. TRIAMCINOLONE ACETONIDE. [Suspect]
     Active Substance: TRIAMCINOLONE ACETONIDE
     Dosage: UNK, THREE DAYS AFTER, PRESERVATIVE?FREE TRIAMCINOLONE INJECTION
  2. TRIAMCINOLONE ACETONIDE. [Suspect]
     Active Substance: TRIAMCINOLONE ACETONIDE
     Indication: SYMPATHETIC OPHTHALMIA
     Dosage: UNK, PRESERVATIVE?FREE TRIAMCINOLONE INJECTION

REACTIONS (3)
  - Injection site haemorrhage [Unknown]
  - Non-infectious endophthalmitis [Recovered/Resolved]
  - Conjunctival haemorrhage [Unknown]
